FAERS Safety Report 10630594 (Version 2)
Quarter: 2014Q4

REPORT INFORMATION
  Report Type: Spontaneous
  Country: US (occurrence: US)
  Receive Date: 20141205
  Receipt Date: 20141205
  Transmission Date: 20150529
  Serious: No
  Sender: FDA-Public Use
  Company Number: US-BRISTOL-MYERS SQUIBB COMPANY-20953808

PATIENT
  Age: 64 Year
  Sex: Male
  Weight: 158.73 kg

DRUGS (2)
  1. LANTUS [Concomitant]
     Active Substance: INSULIN GLARGINE
     Dosage: 1DF=43 UNITS
  2. BYETTA [Suspect]
     Active Substance: EXENATIDE
     Dosage: INJ?1DF=10MCG TWICE DAILY
     Route: 058

REACTIONS (2)
  - Wrong technique in drug usage process [Unknown]
  - Memory impairment [Not Recovered/Not Resolved]
